FAERS Safety Report 8855496 (Version 1)
Quarter: 2012Q4

REPORT INFORMATION
  Report Type: 
  Country: US (occurrence: US)
  Receive Date: 20121023
  Receipt Date: 20121023
  Transmission Date: 20130627
  Serious: No
  Sender: FDA-Public Use
  Company Number: US-AMGEN-USASP2012060045

PATIENT
  Age: 46 Year
  Sex: Female

DRUGS (3)
  1. ENBREL [Suspect]
     Indication: PSORIASIS
     Dosage: 50 mg, qwk
     Route: 058
  2. PROTONIX [Concomitant]
     Dosage: 20 mg, TAB
  3. ZOLOFT [Concomitant]
     Dosage: 25 mg, TAB

REACTIONS (1)
  - Drug ineffective [Unknown]
